FAERS Safety Report 19994287 (Version 2)
Quarter: 2021Q4

REPORT INFORMATION
  Report Type: Spontaneous
  Country: JP (occurrence: JP)
  Receive Date: 20211026
  Receipt Date: 20211220
  Transmission Date: 20220303
  Serious: Yes (Hospitalization)
  Sender: FDA-Public Use
  Company Number: JP-AMGEN-JPNSP2021162764

PATIENT

DRUGS (1)
  1. ROMOSOZUMAB [Suspect]
     Active Substance: ROMOSOZUMAB
     Indication: Osteoporosis
     Dosage: UNK
     Route: 058

REACTIONS (5)
  - Unevaluable event [Unknown]
  - Injection site pain [Unknown]
  - Hypertension [Unknown]
  - Low density lipoprotein increased [Unknown]
  - Brain natriuretic peptide increased [Unknown]
